FAERS Safety Report 17371630 (Version 1)
Quarter: 2020Q1

REPORT INFORMATION
  Report Type: Report from Study
  Country: CA (occurrence: CA)
  Receive Date: 20200205
  Receipt Date: 20200205
  Transmission Date: 20200409
  Serious: No
  Sender: FDA-Public Use
  Company Number: CA-HLSUS-2019-CA-001682

PATIENT
  Age: 58 Year
  Sex: Male

DRUGS (5)
  1. RISPERIDONE-CONSTA [Concomitant]
     Dosage: 50MG Q2WEEKS
     Route: 030
     Dates: start: 20191212
  2. SERTRALINE [Concomitant]
     Active Substance: SERTRALINE HYDROCHLORIDE
     Dosage: 150MG DAILY
     Route: 048
     Dates: start: 20190212
  3. CLOZARIL [Suspect]
     Active Substance: CLOZAPINE
     Dosage: 400MG
     Route: 048
     Dates: start: 20190924
  4. DIVALPROEX [Concomitant]
     Active Substance: DIVALPROEX SODIUM
     Dosage: 100MG QHS
     Route: 048
     Dates: start: 20190212
  5. ATROPINE 1% [Concomitant]
     Active Substance: ATROPINE
     Dosage: 4G QHS
     Route: 048

REACTIONS (6)
  - Red blood cell count decreased [Unknown]
  - Haemoglobin decreased [Unknown]
  - Haematocrit decreased [Unknown]
  - Lymphocyte count decreased [Unknown]
  - Red blood cell burr cells present [Unknown]
  - Platelet count decreased [Unknown]

NARRATIVE: CASE EVENT DATE: 20191105
